FAERS Safety Report 20775475 (Version 2)
Quarter: 2022Q2

REPORT INFORMATION
  Report Type: Spontaneous
  Country: JP (occurrence: JP)
  Receive Date: 20220502
  Receipt Date: 20220513
  Transmission Date: 20220720
  Serious: No
  Sender: FDA-Public Use
  Company Number: JP-PFIZER INC-202200618261

PATIENT
  Age: 81 Year
  Sex: Female
  Weight: 37.5 kg

DRUGS (3)
  1. PAXLOVID [Suspect]
     Active Substance: NIRMATRELVIR\RITONAVIR
     Indication: COVID-19 treatment
     Dosage: 1 SHEET; ADMINISTRATION DURATION: ONE DAY TO 2 DAYS
     Route: 048
     Dates: start: 202204, end: 202204
  2. BENZOCAINE [Concomitant]
     Active Substance: BENZOCAINE
  3. CALONAL [Concomitant]
     Active Substance: ACETAMINOPHEN

REACTIONS (1)
  - Rash [Recovered/Resolved]

NARRATIVE: CASE EVENT DATE: 20220405
